FAERS Safety Report 12651806 (Version 1)
Quarter: 2016Q3

REPORT INFORMATION
  Report Type: Spontaneous
  Country: US (occurrence: US)
  Receive Date: 20160815
  Receipt Date: 20160815
  Transmission Date: 20161109
  Serious: No
  Sender: FDA-Public Use
  Company Number: US-GALDERMA-US15006888

PATIENT
  Sex: Female

DRUGS (7)
  1. DIFFERIN [Suspect]
     Active Substance: ADAPALENE
     Indication: ACNE
     Route: 061
  2. CLARINS FACE AND EYE CREAM [Concomitant]
     Route: 061
  3. FISH OIL [Concomitant]
     Active Substance: FISH OIL
     Dosage: 2 CAPSULES DAILY
     Route: 048
  4. CALCIUM [Concomitant]
     Active Substance: CALCIUM
  5. NEUTROGENA FACIAL CLEANSER [Concomitant]
  6. NO DRUG NAME [Concomitant]
  7. DIFFERIN [Concomitant]
     Active Substance: ADAPALENE
     Route: 061

REACTIONS (5)
  - Pruritus [Recovered/Resolved]
  - Erythema [Recovered/Resolved]
  - Skin burning sensation [Recovered/Resolved]
  - Skin irritation [Recovered/Resolved]
  - Dermatitis [Recovered/Resolved]
